FAERS Safety Report 4923571-5 (Version None)
Quarter: 2006Q1

REPORT INFORMATION
  Report Type: 
  Country: None (occurrence: None)
  Receive Date: 20060221
  Receipt Date: 20060207
  Transmission Date: 20060701
  Serious: Yes (Hospitalization, Other)
  Sender: FDA-Public Use
  Company Number: 2006019238

PATIENT
  Age: 36 Year
  Sex: Female

DRUGS (6)
  1. LIPITOR [Suspect]
     Indication: BLOOD TRIGLYCERIDES INCREASED
     Dosage: 10 MG (10 MG,1 IN 1 D)
     Dates: start: 20020801
  2. CELEBREX [Suspect]
     Indication: SYSTEMIC LUPUS ERYTHEMATOSUS
     Dosage: 200 MG (200 MG,1 IN 1 D)
     Dates: start: 20040201
  3. ALPRAZOLAM [Suspect]
     Indication: ANXIETY
  4. EFFEXOR [Concomitant]
  5. KLONOPIN [Concomitant]
  6. TRAZODONE HCL [Concomitant]

REACTIONS (15)
  - ANXIETY [None]
  - BLOOD PRESSURE DECREASED [None]
  - COAGULOPATHY [None]
  - CYST [None]
  - CYSTITIS [None]
  - DIALYSIS [None]
  - DRY EYE [None]
  - HAEMORRHAGE [None]
  - MUSCLE SPASMS [None]
  - NAUSEA [None]
  - PAIN [None]
  - PERIPHERAL VASCULAR DISORDER [None]
  - RENAL FAILURE CHRONIC [None]
  - REPRODUCTIVE TRACT DISORDER [None]
  - SYSTEMIC LUPUS ERYTHEMATOSUS [None]
